FAERS Safety Report 5472971-6 (Version None)
Quarter: 2007Q4

REPORT INFORMATION
  Report Type: 
  Country: None (occurrence: None)
  Receive Date: 20071001
  Receipt Date: 20070108
  Transmission Date: 20080405
  Serious: Yes (Other)
  Sender: FDA-Public Use
  Company Number: US-ASTRAZENECA-2007UW00362

PATIENT
  Age: 77 Year
  Sex: Female
  Weight: 52.2 kg

DRUGS (2)
  1. ARIMIDEX [Suspect]
     Indication: BREAST CANCER
     Route: 048
     Dates: start: 20061201
  2. BLOOD PRESSURE MEDICATION [Concomitant]
     Indication: HYPERTENSION

REACTIONS (5)
  - ASTHENIA [None]
  - HOT FLUSH [None]
  - INFECTION [None]
  - NIGHT SWEATS [None]
  - PAIN IN EXTREMITY [None]
